FAERS Safety Report 8177354-6 (Version None)
Quarter: 2012Q1

REPORT INFORMATION
  Report Type: 
  Country: None (occurrence: None)
  Receive Date: 20120301
  Receipt Date: 20120221
  Transmission Date: 20120608
  Serious: Yes (Other)
  Sender: FDA-Public Use
  Company Number: US-BAYER-2012-018557

PATIENT
  Age: 25 Year
  Sex: Female

DRUGS (3)
  1. PHENTERMINE [Concomitant]
     Dosage: UNK
  2. YASMIN [Suspect]
     Dosage: UNK
     Dates: start: 20080801, end: 20081001
  3. FLEXERIL [Concomitant]
     Dosage: UNK

REACTIONS (1)
  - DEEP VEIN THROMBOSIS [None]
